FAERS Safety Report 9383619 (Version 1)
Quarter: 2013Q3

REPORT INFORMATION
  Report Type: Report from Study
  Country: US (occurrence: US)
  Receive Date: 20130704
  Receipt Date: 20130704
  Transmission Date: 20140515
  Serious: Yes (Death)
  Sender: FDA-Public Use
  Company Number: US-PFIZER INC-2013195612

PATIENT
  Sex: Female

DRUGS (5)
  1. DEXTROMETHORPHAN HBR [Suspect]
     Dosage: UNK
  2. OXYCODONE HYDROCHLORIDE [Suspect]
     Dosage: UNK
  3. GUAIFENESIN [Suspect]
     Dosage: UNK
  4. DIPHENHYDRAMINE [Suspect]
     Dosage: UNK
  5. BROMPHENIRAMINE [Suspect]
     Dosage: UNK

REACTIONS (1)
  - Intentional drug misuse [Fatal]
